FAERS Safety Report 5288984-3 (Version None)
Quarter: 2007Q2

REPORT INFORMATION
  Report Type: 
  Country: None (occurrence: None)
  Receive Date: 20070405
  Receipt Date: 20070330
  Transmission Date: 20071010
  Serious: Yes (Other)
  Sender: FDA-Public Use
  Company Number: JP-PFIZER INC-2007018187

PATIENT
  Age: 57 Year
  Sex: Female

DRUGS (2)
  1. JZOLOFT [Suspect]
     Dosage: DAILY DOSE:100MG
     Route: 048
  2. LENDORMIN [Concomitant]
     Route: 048

REACTIONS (2)
  - EPISTAXIS [None]
  - HAEMORRHAGE [None]
